FAERS Safety Report 9708882 (Version 1)
Quarter: 2013Q4

REPORT INFORMATION
  Report Type: Spontaneous
  Country: CN (occurrence: None)
  Receive Date: 20131122
  Receipt Date: 20131122
  Transmission Date: 20140711
  Serious: Yes (Other)
  Sender: FDA-Public Use
  Company Number: SYM-2013-12838

PATIENT
  Age: 59 Year
  Sex: Female

DRUGS (5)
  1. FLUOROURACIL [Suspect]
     Indication: METASTATIC SQUAMOUS CELL CARCINOMA
     Dates: start: 20081218
  2. PACLITAXEL [Suspect]
     Indication: METASTATIC SQUAMOUS CELL CARCINOMA
     Dates: start: 20081219
  3. CISPLATIN (CISPLATIN) (CISPLATIN) [Suspect]
     Indication: METASTATIC SQUAMOUS CELL CARCINOMA
     Dates: start: 20081219
  4. HERBAL PREPARATION (HERBAL PREPARATION) [Concomitant]
  5. ANALGESICS (ANALGESICS) [Concomitant]

REACTIONS (8)
  - Haematotoxicity [None]
  - Off label use [None]
  - Neurotoxicity [None]
  - Nausea [None]
  - Vomiting [None]
  - Alopecia [None]
  - Disease progression [None]
  - Neutropenia [None]
